FAERS Safety Report 6862603-4 (Version None)
Quarter: 2010Q3

REPORT INFORMATION
  Report Type: 
  Country: None (occurrence: None)
  Receive Date: 20100716
  Receipt Date: 20100707
  Transmission Date: 20110219
  Serious: Yes (Death)
  Sender: FDA-Public Use
  Company Number: JP-2010-1268

PATIENT
  Age: 60 Year
  Sex: Female

DRUGS (5)
  1. NAVELBINE [Suspect]
     Indication: BREAST CANCER
     Dosage: 35 MG IV
     Route: 042
     Dates: start: 20100501, end: 20100508
  2. DECADRON [Concomitant]
  3. CELECOX [Concomitant]
  4. PRIMPERAN. MFR: NOT SPECIFIED [Concomitant]
  5. OXYCONTIN [Concomitant]

REACTIONS (11)
  - BLOOD BILIRUBIN INCREASED [None]
  - BLOOD CHLORIDE DECREASED [None]
  - BLOOD CHOLESTEROL INCREASED [None]
  - BLOOD LACTATE DEHYDROGENASE INCREASED [None]
  - CANCER PAIN [None]
  - DECREASED APPETITE [None]
  - HAEMATOCRIT DECREASED [None]
  - HAEMOGLOBIN DECREASED [None]
  - PLATELET COUNT DECREASED [None]
  - PULMONARY INFARCTION [None]
  - WHITE BLOOD CELL COUNT INCREASED [None]
